FAERS Safety Report 7586511-9 (Version None)
Quarter: 2011Q2

REPORT INFORMATION
  Report Type: 
  Country: None (occurrence: None)
  Receive Date: 20110630
  Receipt Date: 20110630
  Transmission Date: 20111010
  Serious: No
  Sender: FDA-Public Use
  Company Number: None

PATIENT
  Sex: Female

DRUGS (1)
  1. DROSPIRENONE AND ETHINYL ESTRADIOL [Suspect]
     Indication: ORAL CONTRACEPTION
     Dosage: 3MG-0.03MG QD ORALLY
     Route: 048
     Dates: start: 20110101, end: 20110601

REACTIONS (2)
  - ACNE CYSTIC [None]
  - PRODUCT SUBSTITUTION ISSUE [None]
